FAERS Safety Report 23148125 (Version 1)
Quarter: 2023Q4

REPORT INFORMATION
  Report Type: Spontaneous
  Country: FR (occurrence: FR)
  Receive Date: 20231106
  Receipt Date: 20231106
  Transmission Date: 20240110
  Serious: Yes (Hospitalization)
  Sender: FDA-Public Use
  Company Number: None

PATIENT
  Age: 86 Year
  Sex: Female
  Weight: 71 kg

DRUGS (6)
  1. HYDROXYUREA [Suspect]
     Active Substance: HYDROXYUREA
     Indication: Essential thrombocythaemia
     Dosage: 1 FP?DAILY DOSE: 500 MILLIGRAM
     Route: 048
     Dates: start: 20230912
  2. HYDROXYUREA [Suspect]
     Active Substance: HYDROXYUREA
     Indication: Essential thrombocythaemia
     Dosage: TAKEN FOR SEVERAL YEARS
  3. FLUOXETINE [Suspect]
     Active Substance: FLUOXETINE HYDROCHLORIDE
     Indication: Depression
     Dosage: 1 FP?DAILY DOSE: 20 MILLIGRAM
     Route: 048
     Dates: start: 20230707, end: 20230912
  4. FUROSEMIDE [Suspect]
     Active Substance: FUROSEMIDE
     Dosage: 1-0-0?DAILY DOSE: 20 MILLIGRAM
  5. SOTALOL [Suspect]
     Active Substance: SOTALOL
     Dosage: 1-0-0?DAILY DOSE: 80 MILLIGRAM
  6. APIXABAN [Suspect]
     Active Substance: APIXABAN
     Dosage: 1-0-1 ?DAILY DOSE: 10 MILLIGRAM

REACTIONS (5)
  - Vascular purpura [Unknown]
  - Dyspnoea [Unknown]
  - Hyperthyroidism [Unknown]
  - Anaemia macrocytic [Unknown]
  - Thrombocytosis [Unknown]

NARRATIVE: CASE EVENT DATE: 20230826
